FAERS Safety Report 16884257 (Version 1)
Quarter: 2019Q4

REPORT INFORMATION
  Report Type: Spontaneous
  Country: US (occurrence: US)
  Receive Date: 20190808
  Receipt Date: 20190808
  Transmission Date: 20200122
  Serious: No
  Sender: FDA-Public Use
  Company Number: None

PATIENT
  Age: 48 Year
  Sex: Male

DRUGS (5)
  1. LIPITOR [Concomitant]
     Active Substance: ATORVASTATIN CALCIUM
  2. VELTASSA [Suspect]
     Active Substance: PATIROMER
     Indication: HYPERKALAEMIA
     Dosage: ?          OTHER DOSE:8.4 GM INTO 1/3 CU;OTHER FREQUENCY:1 PACKET SID;?
     Route: 048
     Dates: start: 20190208
  3. CARVEDILOL. [Concomitant]
     Active Substance: CARVEDILOL
  4. ASPIRIN. [Concomitant]
     Active Substance: ASPIRIN
  5. OXYCODONE [Concomitant]
     Active Substance: OXYCODONE

REACTIONS (3)
  - Therapy cessation [None]
  - Product storage error [None]
  - Memory impairment [None]
